FAERS Safety Report 17188266 (Version 1)
Quarter: 2019Q4

REPORT INFORMATION
  Report Type: Spontaneous
  Country: US (occurrence: US)
  Receive Date: 20191221
  Receipt Date: 20191221
  Transmission Date: 20200122
  Serious: Yes (Other)
  Sender: FDA-Public Use
  Company Number: NVSC2019US073623

PATIENT
  Sex: Female

DRUGS (1)
  1. AMLODIPINE [Suspect]
     Active Substance: AMLODIPINE BESYLATE
     Indication: PRODUCT USED FOR UNKNOWN INDICATION
     Route: 065

REACTIONS (14)
  - Peripheral swelling [Unknown]
  - Skin wrinkling [Unknown]
  - Chronic myeloid leukaemia [Unknown]
  - Erythema [Unknown]
  - Thermal burn [Unknown]
  - Dry skin [Unknown]
  - Skin exfoliation [Unknown]
  - Gait disturbance [Unknown]
  - Constipation [Unknown]
  - Skin tightness [Unknown]
  - Rash [Unknown]
  - Polyarthritis [Unknown]
  - Arthralgia [Unknown]
  - Tenderness [Unknown]
